FAERS Safety Report 9433313 (Version 1)
Quarter: 2013Q3

REPORT INFORMATION
  Report Type: Spontaneous
  Country: GB (occurrence: GB)
  Receive Date: 20130731
  Receipt Date: 20130731
  Transmission Date: 20140515
  Serious: Yes (Disabling)
  Sender: FDA-Public Use
  Company Number: GB-ASTRAZENECA-2013SE55799

PATIENT
  Age: 52 Year
  Sex: Male

DRUGS (9)
  1. TICAGRELOR [Suspect]
     Indication: DRESSLER^S SYNDROME
     Route: 048
     Dates: start: 20130422, end: 20130522
  2. TICAGRELOR [Suspect]
     Indication: STENT PLACEMENT
     Route: 048
     Dates: start: 20130422, end: 20130522
  3. ASPIRIN [Concomitant]
  4. BISOPROLOL [Concomitant]
  5. CANDESARTAN [Concomitant]
  6. DIGOXIN [Concomitant]
  7. EPLERENONE [Concomitant]
  8. FUROSEMIDE [Concomitant]
  9. GTN [Concomitant]

REACTIONS (2)
  - Lethargy [Recovered/Resolved]
  - Liver function test abnormal [Recovered/Resolved]
